FAERS Safety Report 5450857-0 (Version None)
Quarter: 2007Q3

REPORT INFORMATION
  Report Type: 
  Country: None (occurrence: None)
  Receive Date: 20070913
  Receipt Date: 20070904
  Transmission Date: 20080115
  Serious: Yes (Hospitalization)
  Sender: FDA-Public Use
  Company Number: PHHO2007GB14212

PATIENT
  Age: 68 Year
  Sex: Male
  Weight: 89 kg

DRUGS (4)
  1. NATEGLINIDE [Suspect]
     Indication: GLUCOSE TOLERANCE IMPAIRED
     Dosage: LEVEL 1
     Route: 048
     Dates: start: 20030801
  2. NATEGLINIDE [Suspect]
     Dosage: LEVEL 2
     Route: 048
  3. VALSARTAN [Suspect]
     Indication: CARDIOVASCULAR DISORDER
     Dosage: LEVEL 1
     Route: 048
     Dates: start: 20030801
  4. VALSARTAN [Suspect]
     Dosage: LEVEL 2
     Route: 048

REACTIONS (3)
  - ABDOMINAL PAIN [None]
  - NEPHROLITHIASIS [None]
  - URETERAL STENT INSERTION [None]
